FAERS Safety Report 7807789-X (Version None)
Quarter: 2011Q4

REPORT INFORMATION
  Report Type: 
  Country: None (occurrence: None)
  Receive Date: 20111011
  Receipt Date: 20111007
  Transmission Date: 20120403
  Serious: Yes (Other)
  Sender: FDA-Public Use
  Company Number: US-PURDUE-USA-2011-0074882

PATIENT
  Sex: Female
  Weight: 92.517 kg

DRUGS (9)
  1. BUTRANS [Suspect]
     Indication: PAIN IN EXTREMITY
  2. TRAMADOL HCL [Suspect]
     Indication: BACK PAIN
  3. BUTRANS [Suspect]
     Indication: NECK PAIN
  4. TRAMADOL HCL [Suspect]
     Indication: NECK PAIN
  5. TRAMADOL HCL [Suspect]
     Indication: PAIN IN EXTREMITY
  6. BUTRANS [Suspect]
     Indication: ARTHRALGIA
  7. TRAMADOL HCL [Suspect]
     Indication: PAIN
     Dosage: 50 MG, BID
     Route: 048
     Dates: start: 20110829, end: 20110912
  8. BUTRANS [Suspect]
     Indication: BACK PAIN
     Dosage: 5 MCG, Q1H
     Route: 062
     Dates: start: 20110810, end: 20110920
  9. TRAMADOL HCL [Suspect]
     Indication: ARTHRALGIA

REACTIONS (1)
  - HALLUCINATION [None]
